FAERS Safety Report 12283618 (Version 1)
Quarter: 2016Q2

REPORT INFORMATION
  Report Type: Spontaneous
  Country: US (occurrence: US)
  Receive Date: 20160419
  Receipt Date: 20160419
  Transmission Date: 20160815
  Serious: Yes (Hospitalization, Other)
  Sender: FDA-Public Use
  Company Number: US-B.I. PHARMACEUTICALS,INC./RIDGEFIELD-2016-BI-23159BP

PATIENT
  Age: 76 Year
  Sex: Male

DRUGS (1)
  1. COMBIVENT [Suspect]
     Active Substance: ALBUTEROL SULFATE\IPRATROPIUM BROMIDE
     Indication: DYSPNOEA
     Dosage: DOSE PER APPLICATION: 20 MCG / 100 MCG; DAILY DOSE: 80 MCG / 400 MCG
     Route: 055
     Dates: start: 2011

REACTIONS (7)
  - Pneumonia [Recovered/Resolved]
  - Acute respiratory failure [Recovered/Resolved]
  - Influenza [Recovered/Resolved]
  - Lower respiratory tract infection [Not Recovered/Not Resolved]
  - Lymphocytic leukaemia [Not Recovered/Not Resolved]
  - Leukocytosis [Unknown]
  - Hypoxia [Recovered/Resolved]

NARRATIVE: CASE EVENT DATE: 2012
